FAERS Safety Report 23942776 (Version 1)
Quarter: 2024Q2

REPORT INFORMATION
  Report Type: Spontaneous
  Country: US (occurrence: None)
  Receive Date: 20240605
  Receipt Date: 20240605
  Transmission Date: 20240715
  Serious: Yes (Hospitalization)
  Sender: FDA-Public Use
  Company Number: None

PATIENT
  Age: 21 Year
  Sex: Female

DRUGS (1)
  1. OXBRYTA [Suspect]
     Active Substance: VOXELOTOR
     Indication: Sickle cell anaemia with crisis
     Dosage: FREQUENCY : DAILY;?
     Route: 048
     Dates: start: 202007

REACTIONS (4)
  - Nausea [None]
  - Sickle cell anaemia with crisis [None]
  - Haemoglobin decreased [None]
  - Therapy interrupted [None]

NARRATIVE: CASE EVENT DATE: 20240604
